FAERS Safety Report 16171863 (Version 2)
Quarter: 2019Q2

REPORT INFORMATION
  Report Type: Spontaneous
  Country: JP (occurrence: JP)
  Receive Date: 20190408
  Receipt Date: 20190517
  Transmission Date: 20190711
  Serious: Yes (Other)
  Sender: FDA-Public Use
  Company Number: JP-BRISTOL-MYERS SQUIBB COMPANY-BMS-2019-032481

PATIENT
  Age: 39 Year
  Sex: Female

DRUGS (3)
  1. KENACORT-A [Suspect]
     Active Substance: TRIAMCINOLONE
     Indication: EPICONDYLITIS
     Dosage: 10 MILLIGRAM
     Route: 065
  2. BETAMETHASONE SODIUM PHOSPHATE [Suspect]
     Active Substance: BETAMETHASONE SODIUM PHOSPHATE
     Indication: EPICONDYLITIS
     Dosage: 4 MILLIGRAM
     Route: 065
  3. KENACORT-A [Suspect]
     Active Substance: TRIAMCINOLONE
     Indication: PRODUCT USED FOR UNKNOWN INDICATION
     Dosage: 20 UNK
     Route: 065

REACTIONS (2)
  - Tendon injury [Recovered/Resolved]
  - Ligament rupture [Recovered/Resolved]
